FAERS Safety Report 17452253 (Version 1)
Quarter: 2020Q1

REPORT INFORMATION
  Report Type: Spontaneous
  Country: US (occurrence: US)
  Receive Date: 20200224
  Receipt Date: 20200224
  Transmission Date: 20200409
  Serious: Yes (Death, Other)
  Sender: FDA-Public Use
  Company Number: US-TASMAN PHARMA, INC.-2020TSM00049

PATIENT
  Age: 65 Year
  Sex: Female

DRUGS (6)
  1. CLOZAPINE. [Suspect]
     Active Substance: CLOZAPINE
     Indication: BIPOLAR II DISORDER
     Dosage: 50 MG, 1X/DAY
     Route: 048
     Dates: start: 2019, end: 2019
  2. HYDROXYZINE [Concomitant]
     Active Substance: HYDROXYZINE HYDROCHLORIDE
     Dosage: 50 MG, 3X/DAY AS NEEDED (NTE 40 CAPS/30 DAYS)
  3. TRAZODONE [Concomitant]
     Active Substance: TRAZODONE HYDROCHLORIDE
     Dosage: 300 MG, 1X/DAY AT BEDTIME
  4. CLOZAPINE. [Suspect]
     Active Substance: CLOZAPINE
     Indication: POST-TRAUMATIC STRESS DISORDER
     Dosage: 25 MG, 1X/DAY
     Route: 048
     Dates: start: 20190515, end: 2019
  5. CLOZAPINE. [Suspect]
     Active Substance: CLOZAPINE
     Dosage: 100 MG, 1X/DAY
     Route: 048
     Dates: start: 2019, end: 20190612
  6. CLOZAPINE. [Suspect]
     Active Substance: CLOZAPINE
     Dosage: 75 MG, 1X/DAY
     Route: 048
     Dates: start: 2019, end: 2019

REACTIONS (10)
  - Fractured sacrum [Unknown]
  - Suicidal ideation [Unknown]
  - Head injury [Unknown]
  - Pneumonia escherichia [Fatal]
  - Treatment noncompliance [Recovered/Resolved]
  - Overdose [Unknown]
  - Persistent depressive disorder [Unknown]
  - Diabetes mellitus [Unknown]
  - Lung abscess [Fatal]
  - Fall [None]

NARRATIVE: CASE EVENT DATE: 2019
